FAERS Safety Report 8947201 (Version 2)
Quarter: 2013Q2

REPORT INFORMATION
  Report Type: Spontaneous
  Country: US (occurrence: US)
  Receive Date: 20121205
  Receipt Date: 20130405
  Transmission Date: 20140414
  Serious: Yes (Hospitalization)
  Sender: FDA-Public Use
  Company Number: US-GILEAD-2012-0065715

PATIENT
  Age: 19 Year
  Sex: Female

DRUGS (4)
  1. LETAIRIS [Suspect]
     Indication: PULMONARY HYPERTENSION
     Dosage: 10 MG, UNK
     Route: 048
     Dates: start: 20120831
  2. LETAIRIS [Suspect]
     Indication: UNEVALUABLE EVENT
  3. LETAIRIS [Suspect]
     Indication: TRISOMY 21
  4. LETAIRIS [Suspect]
     Indication: SLEEP APNOEA SYNDROME

REACTIONS (1)
  - Catheterisation cardiac [Unknown]
